FAERS Safety Report 20853113 (Version 1)
Quarter: 2022Q2

REPORT INFORMATION
  Report Type: Spontaneous
  Country: AU (occurrence: AU)
  Receive Date: 20220520
  Receipt Date: 20220520
  Transmission Date: 20220720
  Serious: Yes (Other)
  Sender: FDA-Public Use
  Company Number: AU-SUN PHARMACEUTICAL INDUSTRIES LTD-2022RR-337540

PATIENT
  Age: 70 Year
  Sex: Female

DRUGS (13)
  1. DOXORUBICIN [Suspect]
     Active Substance: DOXORUBICIN
     Indication: Ovarian cancer
     Dosage: UNK
     Route: 065
  2. GEMCITABINE [Suspect]
     Active Substance: GEMCITABINE
     Indication: Ovarian cancer
     Dosage: UNK
     Route: 065
  3. PREDNISOLONE [Suspect]
     Active Substance: PREDNISOLONE
     Indication: Ovarian cancer
     Dosage: UNK
     Route: 065
  4. CARBOPLATIN [Suspect]
     Active Substance: CARBOPLATIN
     Indication: Ovarian cancer
     Dosage: UNK
     Route: 065
  5. PACLITAXEL [Suspect]
     Active Substance: PACLITAXEL
     Indication: Ovarian cancer
     Dosage: UNK
     Route: 065
  6. VINCRISTINE [Suspect]
     Active Substance: VINCRISTINE
     Indication: Ovarian cancer
     Dosage: UNK
     Route: 065
  7. CISPLATIN [Suspect]
     Active Substance: CISPLATIN
     Indication: Ovarian cancer
     Dosage: UNK
     Route: 065
  8. RITUXIMAB [Suspect]
     Active Substance: RITUXIMAB
     Indication: Ovarian cancer
     Dosage: UNK
     Route: 065
  9. RITUXIMAB [Suspect]
     Active Substance: RITUXIMAB
     Dosage: UNK, WEEKLY
     Route: 065
  10. ETOPOSIDE [Suspect]
     Active Substance: ETOPOSIDE
     Indication: Ovarian cancer
     Dosage: UNK
     Route: 065
  11. CYCLOPHOSPHAMIDE [Suspect]
     Active Substance: CYCLOPHOSPHAMIDE
     Indication: Ovarian cancer
     Dosage: UNK
     Route: 065
  12. VINORELBINE [Suspect]
     Active Substance: VINORELBINE TARTRATE
     Indication: Ovarian cancer
     Dosage: UNK
     Route: 065
  13. EVEROLIMUS [Suspect]
     Active Substance: EVEROLIMUS
     Indication: Ovarian cancer
     Dosage: 10 MILLIGRAM, DAILY
     Route: 065

REACTIONS (3)
  - Disease recurrence [Unknown]
  - Disease progression [Unknown]
  - Drug ineffective [Unknown]
